FAERS Safety Report 7958170-4 (Version None)
Quarter: 2011Q4

REPORT INFORMATION
  Report Type: 
  Country: None (occurrence: None)
  Receive Date: 20111205
  Receipt Date: 20111125
  Transmission Date: 20120403
  Serious: Yes (Hospitalization)
  Sender: FDA-Public Use
  Company Number: BR-ASTRAZENECA-2011SE55866

PATIENT
  Age: 71 Year
  Sex: Male
  Weight: 80 kg

DRUGS (12)
  1. CRESTOR [Suspect]
     Route: 048
  2. METFORMIN HYDROCHLORIDE [Concomitant]
     Indication: DIABETES MELLITUS
     Route: 048
     Dates: start: 20060101
  3. METOPROLOL SUCCINATE [Suspect]
     Route: 048
     Dates: start: 20091001
  4. VITAMIN [Concomitant]
     Route: 048
     Dates: start: 20060101
  5. ASPIRIN [Concomitant]
     Route: 048
     Dates: start: 20080101
  6. CRESTOR [Suspect]
     Route: 048
     Dates: start: 20100901
  7. LOSARTAN POTASSIUM [Concomitant]
     Dates: start: 20090101
  8. PLAVIX [Concomitant]
     Dates: start: 20090101
  9. CRESTOR [Suspect]
     Indication: HYPERCHOLESTEROLAEMIA
     Route: 048
     Dates: start: 20091001, end: 20100901
  10. LOVAZA [Concomitant]
     Route: 048
     Dates: start: 20060101
  11. DIAMICRON [Concomitant]
     Indication: DIABETES MELLITUS
     Route: 048
     Dates: start: 20060101
  12. JANUVIA [Concomitant]
     Indication: DIABETES MELLITUS
     Route: 048
     Dates: start: 20090101

REACTIONS (2)
  - VENOUS OCCLUSION [None]
  - INAPPROPRIATE SCHEDULE OF DRUG ADMINISTRATION [None]
